FAERS Safety Report 18165779 (Version 1)
Quarter: 2020Q3

REPORT INFORMATION
  Report Type: Spontaneous
  Country: IT (occurrence: IT)
  Receive Date: 20200819
  Receipt Date: 20200819
  Transmission Date: 20201103
  Serious: Yes (Other)
  Sender: FDA-Public Use
  Company Number: IT-AUROBINDO-AUR-APL-2020-039236

PATIENT
  Age: 52 Year
  Sex: Female

DRUGS (2)
  1. VYXEOS [Suspect]
     Active Substance: CYTARABINE\DAUNORUBICIN
     Indication: PRODUCT USED FOR UNKNOWN INDICATION
     Dosage: 44MG/100 MG, INJECTION
     Route: 065
     Dates: start: 20200711
  2. PIPERACILLIN AND TAZOBACTAM [Suspect]
     Active Substance: PIPERACILLIN SODIUM\TAZOBACTAM SODIUM
     Indication: PRODUCT USED FOR UNKNOWN INDICATION
     Dosage: UNK
     Route: 065

REACTIONS (9)
  - Pleural effusion [Unknown]
  - White blood cell count decreased [Unknown]
  - Pelvic fluid collection [Unknown]
  - Platelet count decreased [Unknown]
  - Back pain [Unknown]
  - Urticaria [Recovering/Resolving]
  - Haemoglobin decreased [Unknown]
  - Hyperpyrexia [Unknown]
  - Procalcitonin increased [Unknown]

NARRATIVE: CASE EVENT DATE: 202007
